FAERS Safety Report 5610677-0 (Version None)
Quarter: 2008Q1

REPORT INFORMATION
  Report Type: 
  Country: None (occurrence: None)
  Receive Date: 20080131
  Receipt Date: 20080131
  Transmission Date: 20080703
  Serious: No
  Sender: FDA-Public Use
  Company Number: None

PATIENT
  Sex: Male

DRUGS (1)
  1. HEPARIN SODIUM INJECTION [Suspect]
     Dosage: INJECTABLE

REACTIONS (4)
  - MEDICATION ERROR [None]
  - MYOCARDIAL INFARCTION [None]
  - SKIN DISCOLOURATION [None]
  - THROMBOSIS [None]
